FAERS Safety Report 25636713 (Version 1)
Quarter: 2025Q3

REPORT INFORMATION
  Report Type: Spontaneous
  Country: US (occurrence: US)
  Receive Date: 20250804
  Receipt Date: 20250804
  Transmission Date: 20251020
  Serious: No
  Sender: ELI LILLY AND COMPANY
  Company Number: US-ELI_LILLY_AND_COMPANY-US202507020915

PATIENT
  Age: 51 Year
  Sex: Female

DRUGS (10)
  1. ZEPBOUND [Suspect]
     Active Substance: TIRZEPATIDE
     Indication: Autoimmune disorder
     Route: 065
     Dates: start: 20250130
  2. ZEPBOUND [Suspect]
     Active Substance: TIRZEPATIDE
     Indication: Autoimmune disorder
     Route: 065
     Dates: start: 20250130
  3. ZEPBOUND [Suspect]
     Active Substance: TIRZEPATIDE
     Indication: Autoimmune disorder
     Route: 065
     Dates: start: 20250130
  4. ZEPBOUND [Suspect]
     Active Substance: TIRZEPATIDE
     Indication: Autoimmune disorder
     Route: 065
     Dates: start: 20250130
  5. ZEPBOUND [Suspect]
     Active Substance: TIRZEPATIDE
     Indication: Autoimmune disorder
     Route: 065
     Dates: start: 20250130
  6. ZEPBOUND [Suspect]
     Active Substance: TIRZEPATIDE
     Indication: Inflammation
     Route: 065
  7. ZEPBOUND [Suspect]
     Active Substance: TIRZEPATIDE
     Indication: Inflammation
     Route: 065
  8. ZEPBOUND [Suspect]
     Active Substance: TIRZEPATIDE
     Indication: Inflammation
     Route: 065
  9. ZEPBOUND [Suspect]
     Active Substance: TIRZEPATIDE
     Indication: Inflammation
     Route: 065
  10. ZEPBOUND [Suspect]
     Active Substance: TIRZEPATIDE
     Indication: Inflammation
     Route: 065

REACTIONS (3)
  - Off label use [Unknown]
  - Accidental underdose [Unknown]
  - Injection site pain [Unknown]
